FAERS Safety Report 8835097 (Version 2)
Quarter: 2012Q4

REPORT INFORMATION
  Report Type: 
  Country: US (occurrence: US)
  Receive Date: 20121010
  Receipt Date: 20121219
  Transmission Date: 20130627
  Serious: Yes (Other)
  Sender: FDA-Public Use
  Company Number: US-FRI-1000039268

PATIENT
  Sex: Male

DRUGS (10)
  1. DALIRESP [Suspect]
     Indication: CHRONIC OBSTRUCTIVE PULMONARY DISEASE
     Dates: start: 201205
  2. CRESTOR [Concomitant]
  3. CYMBALTA [Concomitant]
  4. METOPROLOL [Concomitant]
  5. GEMFIBROZIL [Concomitant]
  6. OXYCONTIN [Concomitant]
  7. PERCOCET [Concomitant]
  8. ASPIRIN [Concomitant]
  9. SPIRIVA [Concomitant]
  10. DIAZEPAM [Concomitant]

REACTIONS (2)
  - Renal impairment [Unknown]
  - Obstruction [Unknown]
